FAERS Safety Report 9928602 (Version 1)
Quarter: 2014Q1

REPORT INFORMATION
  Report Type: Spontaneous
  Country: US (occurrence: None)
  Receive Date: 20140221
  Receipt Date: 20140221
  Transmission Date: 20141002
  Serious: Yes (Hospitalization)
  Sender: FDA-Public Use
  Company Number: DL2014-0173

PATIENT
  Age: 21 Year
  Sex: Female

DRUGS (2)
  1. MIFEPRISTONE [Suspect]
     Indication: ABORTION INDUCED
     Route: 048
     Dates: start: 20140122
  2. MISOPROSTOL TABLETS, 200 MCG [Suspect]
     Route: 002

REACTIONS (4)
  - Haemorrhage [None]
  - Dizziness [None]
  - Thrombosis [None]
  - Dizziness [None]
